FAERS Safety Report 8855029 (Version 1)
Quarter: 2012Q4

REPORT INFORMATION
  Report Type: 
  Country: US (occurrence: US)
  Receive Date: 20121023
  Receipt Date: 20121023
  Transmission Date: 20130627
  Serious: Yes (Other)
  Sender: FDA-Public Use
  Company Number: US-SANOFI-AVENTIS-2012SA075156

PATIENT
  Age: 67 Year
  Sex: Female

DRUGS (2)
  1. MULTAQ [Suspect]
     Indication: ATRIAL FIBRILLATION
     Dosage: 8:00 am and 8:00 pm
     Route: 048
     Dates: start: 2009
  2. DILTIAZEM HYDROCHLORIDE [Concomitant]

REACTIONS (1)
  - Atrial fibrillation [Recovered/Resolved]
